FAERS Safety Report 9032497 (Version 2)
Quarter: 2013Q1

REPORT INFORMATION
  Report Type: Report from Study
  Country: US (occurrence: US)
  Receive Date: 20130125
  Receipt Date: 20130325
  Transmission Date: 20140127
  Serious: Yes (Other)
  Sender: FDA-Public Use
  Company Number: US-JNJFOC-20130111608

PATIENT
  Age: 36 Year
  Sex: Female
  Weight: 92.99 kg

DRUGS (9)
  1. REMICADE [Suspect]
     Indication: CROHN^S DISEASE
     Route: 042
     Dates: start: 20130111
  2. REMICADE [Suspect]
     Indication: CROHN^S DISEASE
     Dosage: U/SOLUTION/U/TWICE/INTRAVENOUS
     Route: 042
     Dates: start: 20121228
  3. FOLIC ACID [Concomitant]
     Indication: CROHN^S DISEASE
     Route: 048
     Dates: start: 20121218
  4. BENTYL [Concomitant]
     Indication: PAIN
     Route: 048
     Dates: start: 20121218
  5. AZATHIOPRINE [Concomitant]
     Indication: CROHN^S DISEASE
     Route: 048
     Dates: start: 20121218
  6. HYDROCODONE [Concomitant]
     Indication: PAIN
     Dosage: 5/325MG/TABLET/5/325MG/AS NEEDED/ORAL
     Route: 048
     Dates: start: 20121218, end: 20130117
  7. HYDROCODONE [Concomitant]
     Indication: PAIN
     Route: 048
     Dates: start: 20120117
  8. VICODIN [Concomitant]
     Indication: CROHN^S DISEASE
     Route: 065
  9. PENTASA [Concomitant]
     Indication: CROHN^S DISEASE
     Dosage: MID JAN TO 2ND WEEK OF FEB (YEAR UNSPECIFIED)
     Route: 065

REACTIONS (12)
  - Bedridden [Not Recovered/Not Resolved]
  - Vomiting [Not Recovered/Not Resolved]
  - Diarrhoea [Not Recovered/Not Resolved]
  - Drug ineffective [Not Recovered/Not Resolved]
  - Decreased appetite [Not Recovered/Not Resolved]
  - Feeling abnormal [Not Recovered/Not Resolved]
  - Weight decreased [Not Recovered/Not Resolved]
  - Headache [Not Recovered/Not Resolved]
  - Feeling abnormal [Not Recovered/Not Resolved]
  - Malaise [Not Recovered/Not Resolved]
  - Fatigue [Not Recovered/Not Resolved]
  - Pain [Not Recovered/Not Resolved]
